FAERS Safety Report 6506372-6 (Version None)
Quarter: 2009Q4

REPORT INFORMATION
  Report Type: 
  Country: None (occurrence: None)
  Receive Date: 20091218
  Receipt Date: 20091201
  Transmission Date: 20100525
  Serious: Yes (Hospitalization)
  Sender: FDA-Public Use
  Company Number: DE-GENENTECH-295870

PATIENT
  Sex: Male

DRUGS (1)
  1. RANIBIZUMAB [Suspect]
     Indication: MACULAR DEGENERATION
     Dosage: UNK
     Route: 031
     Dates: start: 20081127

REACTIONS (8)
  - BLOOD PRESSURE INCREASED [None]
  - COORDINATION ABNORMAL [None]
  - DIZZINESS [None]
  - FEELING ABNORMAL [None]
  - GAIT DISTURBANCE [None]
  - HEADACHE [None]
  - RESTLESSNESS [None]
  - TRANSIENT ISCHAEMIC ATTACK [None]
